FAERS Safety Report 7191456-2 (Version None)
Quarter: 2010Q4

REPORT INFORMATION
  Report Type: 
  Country: None (occurrence: None)
  Receive Date: 20101223
  Receipt Date: 20100816
  Transmission Date: 20110411
  Serious: No
  Sender: FDA-Public Use
  Company Number: US-AMGEN-KDL431793

PATIENT

DRUGS (1)
  1. ENBREL [Suspect]
     Indication: RHEUMATOID ARTHRITIS
     Dosage: 50 MG, QWK
     Route: 058
     Dates: start: 20050301

REACTIONS (10)
  - ARTHROSCOPY [None]
  - BLEPHAROPLASTY [None]
  - CARPAL TUNNEL SYNDROME [None]
  - INJECTION SITE HAEMATOMA [None]
  - INJECTION SITE HAEMORRHAGE [None]
  - INJECTION SITE PAIN [None]
  - NODULE [None]
  - PARANASAL SINUS HYPERSECRETION [None]
  - PNEUMONIA [None]
  - SINUSITIS [None]
